FAERS Safety Report 7493249-5 (Version None)
Quarter: 2011Q2

REPORT INFORMATION
  Report Type: 
  Country: None (occurrence: None)
  Receive Date: 20110513
  Receipt Date: 20110428
  Transmission Date: 20111010
  Serious: Yes (Hospitalization)
  Sender: FDA-Public Use
  Company Number: 031990

PATIENT
  Sex: Female

DRUGS (17)
  1. LOXOPROFEN SODIUM [Concomitant]
  2. BUCILLAMINE [Concomitant]
  3. CANDESARTAN CILEXETIL [Concomitant]
  4. RIMATIL (RIMATIL) (NOT SPECIFIED) [Suspect]
     Indication: RHEUMATOID ARTHRITIS
     Dosage: 200 MG ORAL
     Route: 048
     Dates: start: 20110405
  5. AZULENE SODIUM SULFONATE [Concomitant]
  6. FEXOFENADINE HCL [Concomitant]
  7. CALCITRIOL [Concomitant]
  8. CERTOLIZUMAB PEGOL (CERTOLIZUMAB PEGOL) [Suspect]
     Indication: RHEUMATOID ARTHRITIS
     Dosage: 200 MG 1X/2 WEEKS SUBCUTANEOUS
     Route: 058
     Dates: start: 20091112, end: 20110331
  9. CERTOLIZUMAB PEGOL (CERTOLIZUMAB PEGOL) [Suspect]
     Indication: RHEUMATOID ARTHRITIS
     Dosage: 200 MG 1X/2 WEEKS SUBCUTANEOUS
     Route: 058
     Dates: start: 20090709, end: 20091028
  10. MANIDIPINE HYDROCHLORIDE [Concomitant]
  11. L-GLUTAMINE /00900601/ [Concomitant]
  12. CEFPODOXIME PROXETIL [Concomitant]
  13. ACETAMINOPHEN [Concomitant]
  14. MOXIFLOXACIN HYDROCHLRIDE [Concomitant]
  15. PRANLUKAST (PRANLUKAST) [Suspect]
     Indication: INTERSTITIAL LUNG DISEASE
     Dosage: 450 MG ORAL, 450 MG ORAL
     Route: 048
     Dates: start: 20110405, end: 20110415
  16. PRANLUKAST (PRANLUKAST) [Suspect]
     Indication: INTERSTITIAL LUNG DISEASE
     Dosage: 450 MG ORAL, 450 MG ORAL
     Route: 048
     Dates: start: 20110423, end: 20110425
  17. FLUVASTATIN SODIUM [Concomitant]

REACTIONS (5)
  - CONDITION AGGRAVATED [None]
  - FUNGAL INFECTION [None]
  - INTERSTITIAL LUNG DISEASE [None]
  - VIRAL INFECTION [None]
  - INFECTION [None]
